FAERS Safety Report 13013364 (Version 2)
Quarter: 2017Q1

REPORT INFORMATION
  Report Type: Report from Study
  Country: US (occurrence: US)
  Receive Date: 20161209
  Receipt Date: 20170116
  Transmission Date: 20170428
  Serious: Yes (Other)
  Sender: FDA-Public Use
  Company Number: US-JNJFOC-20161203147

PATIENT
  Sex: Male
  Weight: 70.31 kg

DRUGS (5)
  1. FOLIC ACID. [Concomitant]
     Active Substance: FOLIC ACID
  2. SIMPONI ARIA [Suspect]
     Active Substance: GOLIMUMAB
     Indication: RHEUMATOID ARTHRITIS
     Route: 042
  3. SIMPONI ARIA [Suspect]
     Active Substance: GOLIMUMAB
     Indication: RHEUMATOID ARTHRITIS
     Route: 042
  4. SIMPONI ARIA [Suspect]
     Active Substance: GOLIMUMAB
     Indication: RHEUMATOID ARTHRITIS
     Route: 042
     Dates: start: 2016
  5. LISINOPRIL. [Concomitant]
     Active Substance: LISINOPRIL
     Indication: HYPERTENSION
     Route: 065

REACTIONS (5)
  - Drug ineffective [Not Recovered/Not Resolved]
  - Pneumonia [Recovered/Resolved]
  - Rash [Unknown]
  - Arthralgia [Not Recovered/Not Resolved]
  - Pruritus [Unknown]

NARRATIVE: CASE EVENT DATE: 2016
